FAERS Safety Report 8404867-1 (Version None)
Quarter: 2012Q2

REPORT INFORMATION
  Report Type: 
  Country: None (occurrence: None)
  Receive Date: 20120601
  Receipt Date: 20101214
  Transmission Date: 20120825
  Serious: Yes (Hospitalization)
  Sender: FDA-Public Use
  Company Number: US-ASTRAZENECA-2011SE42189

PATIENT
  Sex: Female

DRUGS (1)
  1. ATACAND HCT [Suspect]
     Indication: HYPERTENSION
     Dosage: 32+12.5 MG,
     Route: 048

REACTIONS (2)
  - DRUG DOSE OMISSION [None]
  - DIZZINESS [None]
